FAERS Safety Report 18474115 (Version 1)
Quarter: 2020Q4

REPORT INFORMATION
  Report Type: Spontaneous
  Country: US (occurrence: US)
  Receive Date: 20201106
  Receipt Date: 20201106
  Transmission Date: 20210114
  Serious: No
  Sender: FDA-Public Use
  Company Number: US-PFIZER INC-2018313762

PATIENT
  Age: 81 Year
  Sex: Female

DRUGS (4)
  1. LYRICA [Suspect]
     Active Substance: PREGABALIN
     Indication: NEUROPATHY PERIPHERAL
     Dosage: 100 MG, DAILY (25 MG, 1 AT AM, 1 AT 6PM, 2 BEFORE BED)
     Route: 048
     Dates: start: 20181024
  2. LYRICA [Suspect]
     Active Substance: PREGABALIN
     Dosage: 25 MG, 3X/DAY
  3. LYRICA [Suspect]
     Active Substance: PREGABALIN
     Dosage: 100 MG, DAILY (25MG CAPSULES, TWO CAPSULES AT SUPPER AND TWO AT MIDNIGHT, DAILY)
     Route: 048
     Dates: end: 20201028
  4. LYRICA [Suspect]
     Active Substance: PREGABALIN
     Dosage: 100 MG, DAILY (2 AT 6PM, 2 AT BEDTIME)
     Route: 048

REACTIONS (2)
  - Nausea [Unknown]
  - Feeling cold [Unknown]

NARRATIVE: CASE EVENT DATE: 2020
